FAERS Safety Report 5714592-3 (Version None)
Quarter: 2008Q2

REPORT INFORMATION
  Report Type: 
  Country: None (occurrence: None)
  Receive Date: 20080423
  Receipt Date: 20080415
  Transmission Date: 20081010
  Serious: Yes (Other)
  Sender: FDA-Public Use
  Company Number: A0714740A

PATIENT
  Sex: Male

DRUGS (1)
  1. AVANDIA [Suspect]
     Indication: DRUG USE FOR UNKNOWN INDICATION
     Route: 048

REACTIONS (5)
  - ARRHYTHMIA [None]
  - ARTERIAL DISORDER [None]
  - DIARRHOEA [None]
  - FATIGUE [None]
  - MYOCARDIAL INFARCTION [None]
